FAERS Safety Report 18636305 (Version 3)
Quarter: 2021Q1

REPORT INFORMATION
  Report Type: Spontaneous
  Country: US (occurrence: US)
  Receive Date: 20201218
  Receipt Date: 20210118
  Transmission Date: 20210419
  Serious: No
  Sender: FDA-Public Use
  Company Number: US-ASTRAZENECA-2020SF55322

PATIENT
  Sex: Female
  Weight: 59 kg

DRUGS (5)
  1. SYMBICORT [Suspect]
     Active Substance: BUDESONIDE\FORMOTEROL FUMARATE DIHYDRATE
     Indication: BRONCHITIS
     Dosage: 160/4.5 MCG 2 INHALATIONS TWO TIMES A DAY, 120 DOSES
     Route: 055
     Dates: start: 2015
  2. VITAMIN B12 [Concomitant]
     Active Substance: CYANOCOBALAMIN
     Dosage: 1000.0MG UNKNOWN
  3. LOSARTAN. [Concomitant]
     Active Substance: LOSARTAN
     Indication: BLOOD PRESSURE MEASUREMENT
     Dosage: DAILY
  4. ALBUTEROL. [Suspect]
     Active Substance: ALBUTEROL
     Route: 065
  5. AMLODIPINE [Concomitant]
     Active Substance: AMLODIPINE BESYLATE
     Dosage: 2.5MG UNKNOWN

REACTIONS (7)
  - Tremor [Unknown]
  - Intentional device misuse [Unknown]
  - Wheezing [Recovered/Resolved]
  - Fatigue [Unknown]
  - Device malfunction [Unknown]
  - Panic attack [Unknown]
  - Device delivery system issue [Unknown]
